FAERS Safety Report 6143714-8 (Version None)
Quarter: 2009Q2

REPORT INFORMATION
  Report Type: 
  Country: None (occurrence: None)
  Receive Date: 20090403
  Receipt Date: 20090324
  Transmission Date: 20091009
  Serious: Yes (Hospitalization)
  Sender: FDA-Public Use
  Company Number: JP-ABBOTT-09P-087-0500893-00

PATIENT
  Age: 72 Year
  Sex: Male

DRUGS (8)
  1. LEUPLIN SR FOR INJECTION 11.25 MG [Suspect]
     Indication: PROSTATE CANCER STAGE III
     Route: 058
     Dates: start: 20060620, end: 20071106
  2. LEUPLIN SR FOR INJECTION 11.25 MG [Suspect]
     Dosage: FORM: 3.75 MILLIGRAM
     Dates: start: 20060425, end: 20060523
  3. CASODEX [Concomitant]
     Indication: PROSTATE CANCER STAGE III
     Route: 048
     Dates: end: 20070521
  4. PURSENNID [Concomitant]
     Indication: CONSTIPATION
     Route: 048
     Dates: start: 20060815, end: 20070404
  5. ESTRAMUSTINE PHOSPHATE SODIUM [Concomitant]
     Indication: PROSTATE CANCER STAGE III
     Route: 048
     Dates: start: 20071204, end: 20080129
  6. RINDERON [Concomitant]
     Indication: PROSTATE CANCER STAGE III
     Route: 048
     Dates: start: 20071204, end: 20080129
  7. FERROMIA [Concomitant]
     Indication: NEPHROGENIC ANAEMIA
     Route: 048
     Dates: start: 20070522, end: 20080129
  8. TAMSULOSIN HYDROCHLORIDE [Concomitant]
     Indication: DYSURIA
     Route: 048
     Dates: start: 20070626, end: 20080129

REACTIONS (1)
  - CEREBRAL INFARCTION [None]
